FAERS Safety Report 8234231-X (Version None)
Quarter: 2012Q1

REPORT INFORMATION
  Report Type: 
  Country: None (occurrence: None)
  Receive Date: 20120326
  Receipt Date: 20120319
  Transmission Date: 20120608
  Serious: Yes (Hospitalization, Other)
  Sender: FDA-Public Use
  Company Number: US-BAYER-2011-107521

PATIENT
  Age: 16 Year
  Sex: Female
  Weight: 54.422 kg

DRUGS (8)
  1. YAZ [Suspect]
     Indication: PREMENSTRUAL SYNDROME
  2. HYOSCYAMINE [Concomitant]
     Dosage: 0.125 MG, UNK
  3. YAZ [Suspect]
     Indication: MENSTRUAL CYCLE MANAGEMENT
  4. MOTRIN [Concomitant]
  5. YAZ [Suspect]
     Indication: CONTRACEPTION
     Dosage: UNK
     Route: 048
     Dates: start: 20090101, end: 20100101
  6. NIFEDIPINE [Concomitant]
     Dosage: UNK
     Dates: start: 20100201, end: 20100301
  7. HYDROCODONE BITARTRATE AND ACETAMINOPHEN [Concomitant]
     Dosage: 5-500
  8. GARDASIL [Concomitant]

REACTIONS (5)
  - CHOLECYSTITIS CHRONIC [None]
  - CARDIAC DISORDER [None]
  - GALLBLADDER DISORDER [None]
  - EMOTIONAL DISTRESS [None]
  - PAIN [None]
